FAERS Safety Report 8560013-5 (Version None)
Quarter: 2012Q3

REPORT INFORMATION
  Report Type: 
  Country: None (occurrence: None)
  Receive Date: 20120802
  Receipt Date: 20120724
  Transmission Date: 20120928
  Serious: Yes (Hospitalization)
  Sender: FDA-Public Use
  Company Number: US-INCYTE CORPORATION-2012IN001369

PATIENT
  Sex: Male

DRUGS (2)
  1. JAKAFI [Suspect]
     Indication: MYELOFIBROSIS
     Dosage: 15 MG, BID
     Route: 048
     Dates: end: 20120226
  2. JAKAFI [Suspect]
     Dosage: 5 MG, BID
     Route: 048
     Dates: start: 20120227

REACTIONS (3)
  - DIARRHOEA [None]
  - SEPSIS [None]
  - THROMBOCYTOPENIA [None]
